FAERS Safety Report 6440443-8 (Version None)
Quarter: 2009Q4

REPORT INFORMATION
  Report Type: 
  Country: None (occurrence: None)
  Receive Date: 20091113
  Receipt Date: 20091013
  Transmission Date: 20100525
  Serious: No
  Sender: FDA-Public Use
  Company Number: US-BAYER-200936316NA

PATIENT
  Age: 26 Year
  Sex: Female

DRUGS (2)
  1. AVELOX [Suspect]
     Indication: PNEUMONIA PRIMARY ATYPICAL
  2. ASCORBIC ACID [Concomitant]

REACTIONS (2)
  - ERYTHEMA [None]
  - PRURITUS [None]
